FAERS Safety Report 16688097 (Version 1)
Quarter: 2019Q3

REPORT INFORMATION
  Report Type: Spontaneous
  Country: US (occurrence: US)
  Receive Date: 20190624
  Receipt Date: 20190624
  Transmission Date: 20191004
  Serious: Yes (Other)
  Sender: FDA-Public Use
  Company Number: None

PATIENT
  Age: 51 Year
  Sex: Female

DRUGS (10)
  1. CALCIUM [Concomitant]
     Active Substance: CALCIUM
  2. BUPROPRION [Concomitant]
     Active Substance: BUPROPION
  3. WELLBUTRIN [Concomitant]
     Active Substance: BUPROPION HYDROCHLORIDE
  4. CLONEZEPAM [Concomitant]
  5. KISQALI [Suspect]
     Active Substance: RIBOCICLIB
     Route: 048
     Dates: start: 20190508
  6. OXYCODONE [Concomitant]
     Active Substance: OXYCODONE
  7. IBUPROFEN. [Concomitant]
     Active Substance: IBUPROFEN
  8. ANASTRAZOLE [Concomitant]
     Active Substance: ANASTROZOLE
  9. OMEPRAZOLE. [Concomitant]
     Active Substance: OMEPRAZOLE
  10. ZOFRAN [Concomitant]
     Active Substance: ONDANSETRON HYDROCHLORIDE

REACTIONS (3)
  - Nausea [None]
  - Malignant neoplasm progression [None]
  - Headache [None]

NARRATIVE: CASE EVENT DATE: 20190621
